FAERS Safety Report 7919696-2 (Version None)
Quarter: 2011Q4

REPORT INFORMATION
  Report Type: 
  Country: None (occurrence: None)
  Receive Date: 20111115
  Receipt Date: 20111110
  Transmission Date: 20120403
  Serious: Yes (Hospitalization, Other)
  Sender: FDA-Public Use
  Company Number: 2011SP030601

PATIENT
  Age: 35 Year
  Sex: Female
  Weight: 79.3795 kg

DRUGS (1)
  1. NUVARING [Suspect]
     Indication: OVARIAN CYST
     Dates: start: 20080602, end: 20080621

REACTIONS (28)
  - EMOTIONAL DISORDER [None]
  - HEADACHE [None]
  - ABDOMINAL DISTENSION [None]
  - DYSFUNCTIONAL UTERINE BLEEDING [None]
  - DYSMENORRHOEA [None]
  - HEPATIC CIRRHOSIS [None]
  - HYPERTENSION [None]
  - ANXIETY [None]
  - ASTHMA [None]
  - THROMBOSIS [None]
  - WEIGHT INCREASED [None]
  - POLYCYSTIC OVARIES [None]
  - NIGHT SWEATS [None]
  - CRYING [None]
  - MIGRAINE [None]
  - OSTEOPOROSIS [None]
  - DEEP VEIN THROMBOSIS [None]
  - MOOD SWINGS [None]
  - SOCIAL PHOBIA [None]
  - DEPRESSION [None]
  - PULMONARY EMBOLISM [None]
  - UTERINE LEIOMYOMA [None]
  - UMBILICAL HERNIA [None]
  - OVARIAN CYST [None]
  - MENTAL DISORDER [None]
  - HOT FLUSH [None]
  - HYPOAESTHESIA [None]
  - CEREBROVASCULAR ACCIDENT [None]
